FAERS Safety Report 8055393-3 (Version None)
Quarter: 2011Q4

REPORT INFORMATION
  Report Type: 
  Country: None (occurrence: None)
  Receive Date: 20111213
  Receipt Date: 20111104
  Transmission Date: 20120403
  Serious: No
  Sender: FDA-Public Use
  Company Number: 2011SP052256

PATIENT
  Age: 37 Year
  Sex: Female

DRUGS (1)
  1. SAPHRIS [Suspect]
     Indication: SCHIZOPHRENIFORM DISORDER
     Dosage: 5 MG;BID;SL
     Route: 060
     Dates: start: 20111001

REACTIONS (1)
  - GLOSSODYNIA [None]
